FAERS Safety Report 8033646-2 (Version None)
Quarter: 2012Q1

REPORT INFORMATION
  Report Type: 
  Country: None (occurrence: None)
  Receive Date: 20120110
  Receipt Date: 20120104
  Transmission Date: 20120608
  Serious: Yes (Other)
  Sender: FDA-Public Use
  Company Number: GB-GLAXOSMITHKLINE-B0772726A

PATIENT
  Age: 80 Year
  Sex: Male

DRUGS (9)
  1. PROCHLORPERAZINE [Concomitant]
     Dosage: 15MG PER DAY
     Route: 048
     Dates: start: 20111216
  2. ISOSORBIDE MONONITRATE [Concomitant]
     Dosage: 20MG PER DAY
     Route: 048
     Dates: start: 20110411
  3. ACETAMINOPHEN AND CODEINE PHOSPHATE [Concomitant]
     Route: 048
     Dates: start: 20110411
  4. ACETAMINOPHEN [Concomitant]
     Dosage: 4G PER DAY
     Route: 048
     Dates: start: 20110922
  5. BISOPROLOL FUMARATE [Concomitant]
     Dosage: 2.5MG PER DAY
     Route: 048
     Dates: start: 20110216
  6. ORLISTAT [Suspect]
     Dosage: 360MG PER DAY
     Route: 048
     Dates: start: 20110615
  7. ASPIRIN [Concomitant]
     Dosage: 300MG PER DAY
     Route: 048
     Dates: start: 20110216
  8. LANSOPRAZOLE [Concomitant]
     Dosage: 30MG PER DAY
     Route: 048
     Dates: start: 20110720
  9. ATORVASTATIN [Concomitant]
     Dosage: 10MG PER DAY
     Route: 048
     Dates: start: 20110430

REACTIONS (1)
  - MUSCLE SPASMS [None]
